FAERS Safety Report 9107633 (Version 1)
Quarter: 2013Q1

REPORT INFORMATION
  Report Type: Spontaneous
  Country: SE (occurrence: SE)
  Receive Date: 20130221
  Receipt Date: 20130221
  Transmission Date: 20140127
  Serious: Yes (Hospitalization)
  Sender: FDA-Public Use
  Company Number: SE-009507513-1302SWE005944

PATIENT
  Age: 81 Year
  Sex: Male

DRUGS (1)
  1. SINEMET [Suspect]
     Dosage: 5 DF, QD
     Route: 048
     Dates: start: 2005

REACTIONS (1)
  - Cardiac discomfort [Not Recovered/Not Resolved]
